FAERS Safety Report 4560551-6 (Version None)
Quarter: 2005Q1

REPORT INFORMATION
  Report Type: 
  Country: None (occurrence: None)
  Receive Date: 20050125
  Receipt Date: 20050120
  Transmission Date: 20050727
  Serious: Yes (Other)
  Sender: FDA-Public Use
  Company Number: GB-GLAXOSMITHKLINE-B0365185A

PATIENT
  Age: 17 Year
  Sex: Male

DRUGS (1)
  1. ALBUTEROL [Suspect]
     Indication: EXERCISE TEST
     Dosage: 5MG PER DAY
     Route: 055
     Dates: start: 20050106, end: 20050106

REACTIONS (1)
  - MUSCLE SPASMS [None]
